FAERS Safety Report 10949069 (Version 1)
Quarter: 2015Q1

REPORT INFORMATION
  Report Type: Report from Study
  Country: JP (occurrence: JP)
  Receive Date: 20150324
  Receipt Date: 20150324
  Transmission Date: 20150721
  Serious: Yes (Hospitalization, Other)
  Sender: FDA-Public Use
  Company Number: JP-ASTELLAS-2005JP000923

PATIENT
  Age: 16 Year
  Sex: Male
  Weight: 35 kg

DRUGS (16)
  1. TACROLIMUS. [Suspect]
     Active Substance: TACROLIMUS
     Route: 048
     Dates: start: 19991216
  2. ZOVIRAX [Concomitant]
     Active Substance: ACYCLOVIR
     Indication: BLOOD PARATHYROID HORMONE INCREASED
     Route: 048
     Dates: start: 19991222
  3. CEFAMEZIN [Concomitant]
     Active Substance: CEFAZOLIN
     Indication: BLOOD PARATHYROID HORMONE INCREASED
     Route: 042
     Dates: start: 19991214, end: 19991218
  4. ISODINE [Concomitant]
     Active Substance: POVIDONE-IODINE
     Indication: BLOOD PARATHYROID HORMONE INCREASED
     Route: 002
     Dates: start: 20000331
  5. METHYLPREDNISOLONE. [Concomitant]
     Active Substance: METHYLPREDNISOLONE
     Route: 048
     Dates: start: 20000331
  6. MIZORIBINE [Concomitant]
     Active Substance: MIZORIBINE
     Route: 048
     Dates: start: 20000331
  7. METHYLPREDNISOLONE. [Concomitant]
     Active Substance: METHYLPREDNISOLONE
     Indication: PRODUCT USED FOR UNKNOWN INDICATION
     Route: 042
     Dates: start: 19991214, end: 19991217
  8. MIZORIBINE [Concomitant]
     Active Substance: MIZORIBINE
     Indication: PRODUCT USED FOR UNKNOWN INDICATION
     Route: 048
     Dates: start: 19991212, end: 19991217
  9. METHYLPREDNISOLONE. [Concomitant]
     Active Substance: METHYLPREDNISOLONE
     Indication: PRODUCT USED FOR UNKNOWN INDICATION
     Dosage: UNK, UNK
     Route: 048
  10. METHYLPREDNISOLONE. [Concomitant]
     Active Substance: METHYLPREDNISOLONE
     Route: 048
     Dates: start: 20000626
  11. MIZORIBINE [Concomitant]
     Active Substance: MIZORIBINE
     Route: 048
     Dates: start: 20000626
  12. BAKTAR [Concomitant]
     Active Substance: SULFAMETHOXAZOLE\TRIMETHOPRIM
     Indication: BLOOD PARATHYROID HORMONE INCREASED
     Route: 048
     Dates: start: 19991222
  13. TACROLIMUS. [Suspect]
     Active Substance: TACROLIMUS
     Indication: RENAL TRANSPLANT
     Dosage: UNK, UNK
     Route: 041
     Dates: start: 19991212, end: 19991216
  14. URINORM [Concomitant]
     Active Substance: BENZBROMARONE
     Indication: BLOOD PARATHYROID HORMONE INCREASED
     Route: 048
     Dates: start: 20000331
  15. SELBEX [Concomitant]
     Active Substance: TEPRENONE
     Indication: BLOOD PARATHYROID HORMONE INCREASED
     Route: 048
     Dates: start: 20000214
  16. NORVASC [Concomitant]
     Active Substance: AMLODIPINE BESYLATE
     Indication: HYPERTENSION
     Route: 048
     Dates: start: 19991222

REACTIONS (1)
  - Blood parathyroid hormone increased [Recovering/Resolving]

NARRATIVE: CASE EVENT DATE: 20000626
